FAERS Safety Report 9049477 (Version 1)
Quarter: 2013Q1

REPORT INFORMATION
  Report Type: Spontaneous
  Country: SK (occurrence: SK)
  Receive Date: 20130205
  Receipt Date: 20130205
  Transmission Date: 20140127
  Serious: No
  Sender: FDA-Public Use
  Company Number: SK-GLAXOSMITHKLINE-B0864328A

PATIENT
  Age: 30 Year
  Sex: Female

DRUGS (4)
  1. TROBALT [Suspect]
     Indication: PARTIAL SEIZURES
     Dosage: 300MG THREE TIMES PER DAY
     Route: 048
     Dates: start: 20120115
  2. LEVETIRACETAM [Concomitant]
  3. QUETIAPINE [Concomitant]
  4. ZONISAMIDE [Concomitant]

REACTIONS (1)
  - Urinary hesitation [Not Recovered/Not Resolved]
